FAERS Safety Report 20345544 (Version 1)
Quarter: 2022Q1

REPORT INFORMATION
  Report Type: Spontaneous
  Country: US (occurrence: None)
  Receive Date: 20220114
  Receipt Date: 20220114
  Transmission Date: 20220424
  Serious: No
  Sender: FDA-Public Use
  Company Number: None

PATIENT
  Age: 38 Year
  Weight: 91.35 kg

DRUGS (1)
  1. ADZENYS XR-ODT [Suspect]
     Active Substance: AMPHETAMINE
     Indication: Product used for unknown indication
     Route: 060

REACTIONS (4)
  - Stomatitis [None]
  - Cheilitis [None]
  - Glossodynia [None]
  - Product solubility abnormal [None]

NARRATIVE: CASE EVENT DATE: 20220112
